FAERS Safety Report 5721297-1 (Version None)
Quarter: 2008Q2

REPORT INFORMATION
  Report Type: 
  Country: None (occurrence: None)
  Receive Date: 20080424
  Receipt Date: 20080408
  Transmission Date: 20081010
  Serious: Yes (Hospitalization)
  Sender: FDA-Public Use
  Company Number: 001#1#2008-00223

PATIENT
  Age: 83 Year
  Sex: Male

DRUGS (1)
  1. NEUPRO [Suspect]
     Dosage: TRANSDERMAL
     Route: 062

REACTIONS (1)
  - PNEUMONIA [None]
